FAERS Safety Report 6068491-0 (Version None)
Quarter: 2009Q1

REPORT INFORMATION
  Report Type: 
  Country: None (occurrence: None)
  Receive Date: 20090206
  Receipt Date: 20090130
  Transmission Date: 20090719
  Serious: Yes (Hospitalization)
  Sender: FDA-Public Use
  Company Number: CA-PFIZER INC-2009163626

PATIENT

DRUGS (3)
  1. CELEBREX [Suspect]
     Indication: ARTHRITIS
     Route: 048
  2. PERCOCET [Concomitant]
     Route: 048
  3. TRIAZOLAM [Concomitant]

REACTIONS (5)
  - HAEMORRHAGE [None]
  - HEADACHE [None]
  - HERNIA [None]
  - MALAISE [None]
  - NAUSEA [None]
